FAERS Safety Report 4896022-7 (Version None)
Quarter: 2005Q4

REPORT INFORMATION
  Report Type: 
  Country: None (occurrence: None)
  Receive Date: 20051228
  Receipt Date: 20051027
  Transmission Date: 20060501
  Serious: Yes (Hospitalization)
  Sender: FDA-Public Use
  Company Number: US_990421369

PATIENT
  Age: 60 Year
  Sex: Female
  Weight: 86 kg

DRUGS (20)
  1. ILETIN [Suspect]
     Indication: DIABETES MELLITUS
     Dosage: 20 U DAY
  2. ILETIN I [Suspect]
     Indication: DIABETES MELLITUS
     Dosage: 40 U DAY
  3. LENTE ILETIN II (PORK) [Suspect]
     Indication: DIABETES MELLITUS
  4. ILETIN [Suspect]
     Indication: DIABETES MELLITUS
     Dates: start: 19950101
  5. HUMULIN L [Suspect]
     Indication: DIABETES MELLITUS
     Dates: start: 19971101, end: 19980201
  6. HUMALOG MIX 75/25 [Suspect]
     Indication: DIABETES MELLITUS
  7. HUMULIN N [Suspect]
     Indication: DIABETES MELLITUS
  8. NOVOLIN NPH (INSULIN HUMAN INJECTION, ISOPHANE) [Concomitant]
  9. NOVOLIN R [Concomitant]
  10. RELAFEN [Concomitant]
  11. NEURONTIN [Concomitant]
  12. WELLBUTRIN [Concomitant]
  13. TRENTAL [Concomitant]
  14. DEXADEM [Concomitant]
  15. XANAX (ALPRAZOLAM DUM) [Concomitant]
  16. TRAZODONE HCL [Concomitant]
  17. ULTRAM [Concomitant]
  18. NEXIUM [Concomitant]
  19. LEXAPRO [Concomitant]
  20. SYNTHROID [Concomitant]

REACTIONS (17)
  - ANXIETY [None]
  - BLOOD GLUCOSE DECREASED [None]
  - BLOOD GLUCOSE INCREASED [None]
  - CARDIAC FAILURE CONGESTIVE [None]
  - CONNECTIVE TISSUE DISORDER [None]
  - DEPRESSION [None]
  - DIFFICULTY IN WALKING [None]
  - ERYTHEMA [None]
  - FEELING ABNORMAL [None]
  - GENERAL PHYSICAL HEALTH DETERIORATION [None]
  - HIATUS HERNIA [None]
  - INTERVERTEBRAL DISC DEGENERATION [None]
  - MEMORY IMPAIRMENT [None]
  - MYOCARDIAL INFARCTION [None]
  - NEUROPATHY [None]
  - SKIN EXFOLIATION [None]
  - SLEEP DISORDER [None]
